FAERS Safety Report 21551240 (Version 1)
Quarter: 2022Q4

REPORT INFORMATION
  Report Type: Other
  Country: CN (occurrence: None)
  Receive Date: 20221104
  Receipt Date: 20221104
  Transmission Date: 20230113
  Serious: Yes (Death)
  Sender: FDA-Public Use
  Company Number: CN-ROCHE-3180254

PATIENT
  Age: 58 Year

DRUGS (62)
  1. TOCILIZUMAB [Suspect]
     Active Substance: TOCILIZUMAB
     Indication: Rheumatoid arthritis
     Route: 041
     Dates: start: 20220222
  2. TOCILIZUMAB [Suspect]
     Active Substance: TOCILIZUMAB
     Route: 041
     Dates: start: 20220322
  3. TOCILIZUMAB [Suspect]
     Active Substance: TOCILIZUMAB
     Route: 041
     Dates: start: 20220421
  4. TOCILIZUMAB [Suspect]
     Active Substance: TOCILIZUMAB
     Route: 041
     Dates: start: 20220524
  5. TOCILIZUMAB [Suspect]
     Active Substance: TOCILIZUMAB
     Route: 041
     Dates: start: 20220621
  6. TOCILIZUMAB [Suspect]
     Active Substance: TOCILIZUMAB
     Route: 041
     Dates: start: 20220721
  7. TOCILIZUMAB [Suspect]
     Active Substance: TOCILIZUMAB
     Route: 041
     Dates: start: 20220824
  8. TIGECYCLINE [Concomitant]
     Active Substance: TIGECYCLINE
     Indication: Urinary tract infection
  9. POLYMYXIN B [Concomitant]
     Active Substance: POLYMYXIN B
     Indication: Urinary tract infection
  10. MEROPENEM [Concomitant]
     Active Substance: MEROPENEM
     Indication: Urinary tract infection
  11. CEFOPERAZONE SODIUM\SULBACTAM SODIUM [Concomitant]
     Active Substance: CEFOPERAZONE SODIUM\SULBACTAM SODIUM
     Indication: Urinary tract infection
  12. CASPOFUNGIN ACETATE [Concomitant]
     Active Substance: CASPOFUNGIN ACETATE
     Indication: Urinary tract infection
  13. GANCICLOVIR [Concomitant]
     Active Substance: GANCICLOVIR
     Indication: Urinary tract infection
  14. SULFAMETHOXAZOLE [Concomitant]
     Active Substance: SULFAMETHOXAZOLE
     Indication: Urinary tract infection
  15. AMBROXOL HYDROCHLORIDE [Concomitant]
     Active Substance: AMBROXOL HYDROCHLORIDE
     Indication: Urinary tract infection
  16. DOXOFYLLINE [Concomitant]
     Active Substance: DOXOFYLLINE
     Indication: Urinary tract infection
  17. LEVALBUTEROL HYDROCHLORIDE [Concomitant]
     Active Substance: LEVALBUTEROL HYDROCHLORIDE
     Indication: Urinary tract infection
  18. BUDESONIDE [Concomitant]
     Active Substance: BUDESONIDE
     Indication: Urinary tract infection
  19. ACETYLCYSTEINE [Concomitant]
     Active Substance: ACETYLCYSTEINE
     Indication: Urinary tract infection
  20. THYMALFASIN [Concomitant]
     Active Substance: THYMALFASIN
     Indication: Immunodeficiency
  21. ALBUMIN HUMAN [Concomitant]
     Active Substance: ALBUMIN HUMAN
     Indication: Malnutrition
  22. ALBUMIN HUMAN [Concomitant]
     Active Substance: ALBUMIN HUMAN
     Indication: Cachexia
  23. ALBUMIN HUMAN [Concomitant]
     Active Substance: ALBUMIN HUMAN
     Indication: Hypoproteinaemia
  24. DIETARY SUPPLEMENT [Concomitant]
     Active Substance: DIETARY SUPPLEMENT
     Indication: Hypoproteinaemia
  25. FISH OIL [Concomitant]
     Active Substance: FISH OIL
     Indication: Hypoproteinaemia
  26. PROPOFOL [Concomitant]
     Active Substance: PROPOFOL
     Indication: Hypoproteinaemia
  27. VITAMIN K1 [Concomitant]
     Active Substance: PHYTONADIONE
     Indication: Thrombocytopenia
  28. VITAMIN K1 [Concomitant]
     Active Substance: PHYTONADIONE
     Indication: Hypofibrinogenaemia
  29. VITAMIN K1 [Concomitant]
     Active Substance: PHYTONADIONE
     Indication: Gastrointestinal haemorrhage
  30. VITAMIN K1 [Concomitant]
     Active Substance: PHYTONADIONE
     Indication: Anaemia
  31. CARBAZOCHROME SODIUM SULFONATE [Concomitant]
     Active Substance: CARBAZOCHROME SODIUM SULFONATE
     Indication: Thrombocytopenia
  32. CARBAZOCHROME SODIUM SULFONATE [Concomitant]
     Active Substance: CARBAZOCHROME SODIUM SULFONATE
     Indication: Hypofibrinogenaemia
  33. CARBAZOCHROME SODIUM SULFONATE [Concomitant]
     Active Substance: CARBAZOCHROME SODIUM SULFONATE
     Indication: Gastrointestinal haemorrhage
  34. CARBAZOCHROME SODIUM SULFONATE [Concomitant]
     Active Substance: CARBAZOCHROME SODIUM SULFONATE
     Indication: Anaemia
  35. TRANEXAMIC ACID [Concomitant]
     Active Substance: TRANEXAMIC ACID
     Indication: Thrombocytopenia
  36. TRANEXAMIC ACID [Concomitant]
     Active Substance: TRANEXAMIC ACID
     Indication: Hypofibrinogenaemia
  37. TRANEXAMIC ACID [Concomitant]
     Active Substance: TRANEXAMIC ACID
     Indication: Gastrointestinal haemorrhage
  38. TRANEXAMIC ACID [Concomitant]
     Active Substance: TRANEXAMIC ACID
     Indication: Anaemia
  39. LEUCOGEN [Concomitant]
     Active Substance: LEUCOGEN
     Indication: Thrombocytopenia
  40. LEUCOGEN [Concomitant]
     Active Substance: LEUCOGEN
     Indication: Hypofibrinogenaemia
  41. LEUCOGEN [Concomitant]
     Active Substance: LEUCOGEN
     Indication: Gastrointestinal haemorrhage
  42. LEUCOGEN [Concomitant]
     Active Substance: LEUCOGEN
     Indication: Anaemia
  43. CALCIUM POLYSTYRENE SULFONATE [Concomitant]
     Active Substance: CALCIUM POLYSTYRENE SULFONATE
     Indication: Acute kidney injury
  44. CALCIUM POLYSTYRENE SULFONATE [Concomitant]
     Active Substance: CALCIUM POLYSTYRENE SULFONATE
     Indication: Electrolyte imbalance
  45. FUROSEMIDE [Concomitant]
     Active Substance: FUROSEMIDE
     Indication: Acute kidney injury
  46. FUROSEMIDE [Concomitant]
     Active Substance: FUROSEMIDE
     Indication: Electrolyte imbalance
  47. SPIRONOLACTONE [Concomitant]
     Active Substance: SPIRONOLACTONE
     Indication: Acute kidney injury
  48. SPIRONOLACTONE [Concomitant]
     Active Substance: SPIRONOLACTONE
     Indication: Electrolyte imbalance
  49. INSULIN GLARGINE [Concomitant]
     Active Substance: INSULIN GLARGINE
     Indication: Diabetic nephropathy
  50. FEBUXOSTAT [Concomitant]
     Active Substance: FEBUXOSTAT
     Indication: Blood uric acid decreased
  51. RANITIDINE [Concomitant]
     Active Substance: RANITIDINE
  52. LANSOPRAZOLE [Concomitant]
     Active Substance: LANSOPRAZOLE
  53. ESOMEPRAZOLE [Concomitant]
     Active Substance: ESOMEPRAZOLE
  54. IRBESARTAN [Concomitant]
     Active Substance: IRBESARTAN
  55. NIFEDIPINE [Concomitant]
     Active Substance: NIFEDIPINE
  56. AMLODIPINE BESYLATE [Concomitant]
     Active Substance: AMLODIPINE BESYLATE
  57. PREDNISONE ACETATE [Concomitant]
     Active Substance: PREDNISONE ACETATE
  58. METHYLPREDNISOLONE SODIUM SUCCINATE [Concomitant]
     Active Substance: METHYLPREDNISOLONE SODIUM SUCCINATE
  59. SIMETHICONE (DIMETHICONE) [Concomitant]
     Active Substance: DIMETHICONE
  60. ENEMA (UNK INGREDIENTS) [Concomitant]
  61. CALCIUM GLUCONATE [Concomitant]
     Active Substance: CALCIUM GLUCONATE
  62. MUPIROCIN [Concomitant]
     Active Substance: MUPIROCIN

REACTIONS (1)
  - Pneumonia [Fatal]

NARRATIVE: CASE EVENT DATE: 20220912
